FAERS Safety Report 5743554-5 (Version None)
Quarter: 2008Q2

REPORT INFORMATION
  Report Type: 
  Country: None (occurrence: None)
  Receive Date: 20080519
  Receipt Date: 20080519
  Transmission Date: 20081010
  Serious: Yes (Other)
  Sender: FDA-Public Use
  Company Number: None

PATIENT
  Age: 2 Year
  Sex: Male
  Weight: 15.8759 kg

DRUGS (1)
  1. ZONISAMIDE [Suspect]
     Indication: CONVULSION

REACTIONS (7)
  - APHASIA [None]
  - ATONIC SEIZURES [None]
  - CONVULSION [None]
  - FALL [None]
  - ILL-DEFINED DISORDER [None]
  - POSTURE ABNORMAL [None]
  - THERAPEUTIC AGENT TOXICITY [None]
